FAERS Safety Report 13164044 (Version 1)
Quarter: 2017Q1

REPORT INFORMATION
  Report Type: Spontaneous
  Country: AU (occurrence: AU)
  Receive Date: 20170130
  Receipt Date: 20170130
  Transmission Date: 20170428
  Serious: Yes (Hospitalization)
  Sender: FDA-Public Use
  Company Number: AU-GUERBET LLC-1062516

PATIENT
  Age: 51 Year
  Sex: Male

DRUGS (1)
  1. OPTIRAY [Suspect]
     Active Substance: IOVERSOL
     Indication: COMPUTERISED TOMOGRAM
     Route: 042
     Dates: start: 20170117, end: 20170117

REACTIONS (4)
  - Emotional distress [Unknown]
  - Hyperhidrosis [Unknown]
  - Pallor [Unknown]
  - Nausea [Unknown]

NARRATIVE: CASE EVENT DATE: 20170117
